FAERS Safety Report 9753519 (Version 1)
Quarter: 2013Q4

REPORT INFORMATION
  Report Type: Spontaneous
  Country: US (occurrence: None)
  Receive Date: 20131211
  Receipt Date: 20131211
  Transmission Date: 20140711
  Serious: Yes (Other)
  Sender: FDA-Public Use
  Company Number: FK201305299

PATIENT
  Age: 77 Year
  Sex: Female

DRUGS (8)
  1. LEVOFLOXACIN [Suspect]
     Indication: DIVERTICULITIS
     Dosage: (NOT OTHERWISE SPECIFIED)
     Route: 042
  2. METRONIDAZOLE (METRONIDAZOLE) (METRONIDAZOLE) [Concomitant]
  3. ALLOPURINOL [Concomitant]
  4. DILTIAZEM CD (DILTIAZEM HYDROCHLORIDE) [Concomitant]
  5. FAMOTIDINE (FAMOTIDINE) [Concomitant]
  6. FUROSEMIDE (FUROSEMIDE) [Concomitant]
  7. LEVOTHYROXINE (LEVOTHYROXINE) [Concomitant]
  8. PAROXETINE (PAROXETINE) [Concomitant]

REACTIONS (2)
  - Dyskinesia [None]
  - International normalised ratio increased [None]
